FAERS Safety Report 14147436 (Version 2)
Quarter: 2017Q4

REPORT INFORMATION
  Report Type: Spontaneous
  Country: US (occurrence: US)
  Receive Date: 20171101
  Receipt Date: 20171114
  Transmission Date: 20180321
  Serious: No
  Sender: FDA-Public Use
  Company Number: US-009507513-1710USA013721

PATIENT
  Age: 23 Year
  Sex: Female

DRUGS (5)
  1. MYCOBACTERIUM TUBERCULOSIS POLYSACCHARIDES VACCINE (AOYAMA B) [Concomitant]
     Route: 023
  2. HEPATITIS B VIRUS VACCINE (UNSPECIFIED) [Concomitant]
     Active Substance: HEPATITIS B VIRUS VACCINE
     Route: 030
  3. STERILE DILUENT [Suspect]
     Active Substance: WATER
     Indication: PROPHYLAXIS
     Dosage: UNK
     Dates: start: 20171025
  4. VARIVAX [Suspect]
     Active Substance: VARICELLA-ZOSTER VIRUS STRAIN OKA/MERCK LIVE ANTIGEN
     Indication: PROPHYLAXIS
     Route: 058
     Dates: start: 20171025, end: 20171025
  5. FLUARIX 2011/2012 [Concomitant]
     Active Substance: INFLUENZA A VIRUS A/CALIFORNIA/7/2009 X-181 (H1N1) ANTIGEN (FORMALDEHYDE INACTIVATED)\INFLUENZA A VIRUS A/VICTORIA/210/2009 X-187 (H3N2) ANTIGEN (FORMALDEHYDE INACTIVATED)\INFLUENZA B VIRUS B/BRISBANE/60/2008 ANTIGEN (FORMALDEHYDE INACTIVATED)\INFLUENZA VIRUS VACCINE
     Dosage: UNK
     Route: 030
     Dates: start: 20171023

REACTIONS (3)
  - No adverse event [Unknown]
  - Expired product administered [Unknown]
  - Product storage error [Unknown]

NARRATIVE: CASE EVENT DATE: 20171025
